FAERS Safety Report 17666312 (Version 1)
Quarter: 2020Q2

REPORT INFORMATION
  Report Type: Spontaneous
  Country: US (occurrence: US)
  Receive Date: 20200414
  Receipt Date: 20200414
  Transmission Date: 20200713
  Serious: Yes (Other)
  Sender: FDA-Public Use
  Company Number: NVSC2020US091059

PATIENT
  Age: 75 Year
  Sex: Male

DRUGS (4)
  1. HIDROCLOROTIAZIDE [Suspect]
     Active Substance: HYDROCHLOROTHIAZIDE
     Indication: HYPONATRAEMIA
     Route: 065
  2. CARBAMAZEPINE. [Suspect]
     Active Substance: CARBAMAZEPINE
     Indication: PRODUCT USED FOR UNKNOWN INDICATION
     Route: 065
  3. INSPRA [Suspect]
     Active Substance: EPLERENONE
     Dosage: 50 MG, QD
     Route: 065
  4. INSPRA [Suspect]
     Active Substance: EPLERENONE
     Indication: PRODUCT USED FOR UNKNOWN INDICATION
     Dosage: 50 MG, BID ((1 TAB (50 MG TOTAL) BY MOUTH 2 TIMES A DAY)
     Route: 048

REACTIONS (4)
  - Blood pressure systolic increased [Recovering/Resolving]
  - Blood pressure systolic decreased [Unknown]
  - Hyperkalaemia [Recovering/Resolving]
  - Hyperaldosteronism [Unknown]
